FAERS Safety Report 25141029 (Version 1)
Quarter: 2025Q1

REPORT INFORMATION
  Report Type: Spontaneous
  Country: US (occurrence: US)
  Receive Date: 20250331
  Receipt Date: 20250331
  Transmission Date: 20250409
  Serious: Yes (Congenital Anomaly)
  Sender: VERTEX
  Company Number: US-VERTEX PHARMACEUTICALS-2025-004711

PATIENT

DRUGS (1)
  1. TRIKAFTA [Suspect]
     Active Substance: ELEXACAFTOR\IVACAFTOR\TEZACAFTOR
     Indication: Cystic fibrosis
     Route: 048

REACTIONS (2)
  - Congenital anomaly [Unknown]
  - Exposure during pregnancy [Unknown]
